FAERS Safety Report 14895360 (Version 1)
Quarter: 2018Q2

REPORT INFORMATION
  Report Type: Spontaneous
  Country: ZA (occurrence: ZA)
  Receive Date: 20180515
  Receipt Date: 20180515
  Transmission Date: 20180711
  Serious: Yes (Death, Life-Threatening, Hospitalization, Other)
  Sender: FDA-Public Use
  Company Number: ZA-ACCORD-066899

PATIENT
  Age: 30 Year
  Sex: Female

DRUGS (5)
  1. MYCOPHENOLIC ACID. [Suspect]
     Active Substance: MYCOPHENOLIC ACID
     Indication: CHRONIC ALLOGRAFT NEPHROPATHY
     Dosage: 1 G TWICE DAILY, REDUCED TO 500 MG TWICE DAILY
  2. INSULIN [Concomitant]
     Active Substance: INSULIN NOS
     Indication: DIABETES MELLITUS
     Dates: start: 2010
  3. TACROLIMUS. [Suspect]
     Active Substance: TACROLIMUS
     Indication: CHRONIC ALLOGRAFT NEPHROPATHY
     Dosage: TARGET SERUM TROUGH LEVEL 5-?7 NG/ML, REDUCED TO A TACROLIMUS TARGET TROUGH LEVEL OF 5 NG/ML
  4. METHYLPREDNISOLONE. [Suspect]
     Active Substance: METHYLPREDNISOLONE
     Indication: RENAL IMPAIRMENT
     Dosage: 250 MG DAILY
     Dates: start: 2015
  5. PREDNISONE. [Suspect]
     Active Substance: PREDNISONE
     Indication: CHRONIC ALLOGRAFT NEPHROPATHY
     Dosage: 10 MG/DAY, REDUCED TO 5 MG DAILY

REACTIONS (9)
  - Sepsis [Fatal]
  - BK virus infection [Unknown]
  - Cytomegalovirus infection [Unknown]
  - Systemic inflammatory response syndrome [Unknown]
  - Escherichia infection [Unknown]
  - Klebsiella infection [Unknown]
  - Kaposi^s sarcoma [Unknown]
  - Cryptococcosis [Unknown]
  - Bacterial pyelonephritis [Unknown]
